FAERS Safety Report 9528155 (Version 2)
Quarter: 2013Q3

REPORT INFORMATION
  Report Type: Spontaneous
  Country: IT (occurrence: IT)
  Receive Date: 20130917
  Receipt Date: 20130917
  Transmission Date: 20140515
  Serious: Yes (Hospitalization)
  Sender: FDA-Public Use
  Company Number: PHHY2013IT098143

PATIENT
  Sex: Female

DRUGS (4)
  1. CLOZAPINE [Suspect]
     Dosage: 4 DF (4 POS. UNIT) DAILY
     Route: 048
     Dates: start: 20121101
  2. CLOZAPINE [Suspect]
     Dosage: UNK
     Route: 048
     Dates: start: 20130812, end: 20130814
  3. RIVOTRIL [Concomitant]
     Indication: BIPOLAR DISORDER
     Dosage: UNK
  4. CARBOLITHIUM [Concomitant]
     Indication: BIPOLAR DISORDER
     Dosage: UNK
     Dates: start: 2006

REACTIONS (1)
  - Febrile neutropenia [Recovering/Resolving]
